FAERS Safety Report 7649377-4 (Version None)
Quarter: 2011Q3

REPORT INFORMATION
  Report Type: 
  Country: None (occurrence: None)
  Receive Date: 20110721
  Receipt Date: 20110715
  Transmission Date: 20111222
  Serious: Yes (Hospitalization)
  Sender: FDA-Public Use
  Company Number: 2011029165

PATIENT
  Age: 45 Year
  Sex: Female
  Weight: 79.3795 kg

DRUGS (16)
  1. SYNTHROID [Concomitant]
  2. DILAUDID [Concomitant]
  3. PANTOPRAZOLE [Concomitant]
  4. HIZENTRA [Suspect]
     Indication: IMMUNODEFICIENCY COMMON VARIABLE
     Dosage: 7 G 2X/WEEK, 1 GM 5 ML VIAL, 25 ML IN 304 SITES SUBCUTANEOUS, 7 G 1X/WEEK, SUBCUTANEOUS
     Route: 058
     Dates: start: 20110222
  5. HIZENTRA [Suspect]
     Indication: IMMUNODEFICIENCY COMMON VARIABLE
     Dosage: 7 G 2X/WEEK, 1 GM 5 ML VIAL, 25 ML IN 304 SITES SUBCUTANEOUS, 7 G 1X/WEEK, SUBCUTANEOUS
     Route: 058
     Dates: start: 20110710
  6. HIZENTRA [Suspect]
  7. PERCOCET [Concomitant]
  8. HIZENTRA [Suspect]
  9. VERAPAMIL [Concomitant]
  10. FENTANYL [Concomitant]
  11. ZYVOX [Concomitant]
  12. LASIX [Concomitant]
  13. LIBRAX [Concomitant]
  14. POTASSIUM CHLORIDE [Concomitant]
  15. AMLODIPINE [Concomitant]
  16. METOCLOPRAMIDE [Concomitant]

REACTIONS (13)
  - URINARY TRACT INFECTION [None]
  - CHILLS [None]
  - RENAL PAIN [None]
  - HEART RATE INCREASED [None]
  - ANXIETY [None]
  - INFUSION SITE PAIN [None]
  - INFUSION SITE INDURATION [None]
  - OXYGEN SATURATION DECREASED [None]
  - DYSPNOEA [None]
  - FLANK PAIN [None]
  - FEELING HOT [None]
  - KIDNEY INFECTION [None]
  - PALPITATIONS [None]
